FAERS Safety Report 9003150 (Version 1)
Quarter: 2013Q1

REPORT INFORMATION
  Report Type: Spontaneous
  Country: US (occurrence: US)
  Receive Date: 20130108
  Receipt Date: 20130108
  Transmission Date: 20140127
  Serious: No
  Sender: FDA-Public Use
  Company Number: US-009507513-1301USA000963

PATIENT
  Age: 50 Year
  Sex: Male

DRUGS (3)
  1. SINGULAIR [Suspect]
     Dosage: 10 MG, 1 IN 1 D
     Route: 048
  2. QUININE [Suspect]
     Dosage: 300 MG, 1 IN 1 D
     Route: 047
  3. BIAXIN [Suspect]
     Dosage: 500 MG, 2 IN 1 D
     Route: 048

REACTIONS (3)
  - Pulmonary oedema [Unknown]
  - Pleural effusion [Unknown]
  - Drug hypersensitivity [Unknown]
